FAERS Safety Report 20376797 (Version 1)
Quarter: 2022Q1

REPORT INFORMATION
  Report Type: Spontaneous
  Country: US (occurrence: US)
  Receive Date: 20220125
  Receipt Date: 20220125
  Transmission Date: 20220423
  Serious: No
  Sender: FDA-Public Use
  Company Number: US-009507513-2201USA006785

PATIENT
  Age: 54 Year
  Sex: Female

DRUGS (6)
  1. TEMODAR [Suspect]
     Active Substance: TEMOZOLOMIDE
  2. LUTATHERA [Suspect]
     Active Substance: LUTETIUM OXODOTREOTIDE LU-177
  3. EVEROLIMUS [Suspect]
     Active Substance: EVEROLIMUS
     Dosage: UNK
     Dates: start: 20180416, end: 20180829
  4. SANDOSTATIN LAR DEPOT [Suspect]
     Active Substance: OCTREOTIDE ACETATE
  5. CAPECITABINE [Suspect]
     Active Substance: CAPECITABINE
  6. OCTREOTIDE ACETATE [Suspect]
     Active Substance: OCTREOTIDE ACETATE

REACTIONS (17)
  - Seasonal allergy [Unknown]
  - Globulin abnormal [Unknown]
  - Blood alkaline phosphatase abnormal [Unknown]
  - Blood glucose abnormal [Unknown]
  - Blood sodium abnormal [Unknown]
  - Haematocrit abnormal [Unknown]
  - Blood creatine abnormal [Unknown]
  - Laboratory test abnormal [Unknown]
  - Hypercholesterolaemia [Unknown]
  - Disease progression [Unknown]
  - Hypergammaglobulinaemia [Unknown]
  - Aspartate aminotransferase abnormal [Unknown]
  - Hypertension [Unknown]
  - Weight increased [Unknown]
  - Fatigue [Unknown]
  - Alopecia [Unknown]
  - Anaemia [Unknown]

NARRATIVE: CASE EVENT DATE: 20180820
